FAERS Safety Report 6845433-9 (Version None)
Quarter: 2010Q3

REPORT INFORMATION
  Report Type: 
  Country: None (occurrence: None)
  Receive Date: 20100715
  Receipt Date: 20071005
  Transmission Date: 20110219
  Serious: No
  Sender: FDA-Public Use
  Company Number: US-PFIZER INC-2007070911

PATIENT
  Sex: Female

DRUGS (7)
  1. CHANTIX [Suspect]
     Indication: SMOKING CESSATION THERAPY
     Route: 048
     Dates: start: 20070817
  2. SEROQUEL [Concomitant]
  3. ALPRAZOLAM [Concomitant]
  4. ANTIBIOTICS [Concomitant]
  5. HYDROCODONE [Concomitant]
  6. ZYRTEC [Concomitant]
  7. CORTICOSTEROIDS [Concomitant]

REACTIONS (3)
  - ABNORMAL DREAMS [None]
  - NAUSEA [None]
  - STRESS [None]
